FAERS Safety Report 4520046-2 (Version None)
Quarter: 2004Q4

REPORT INFORMATION
  Report Type: 
  Country: None (occurrence: None)
  Receive Date: 20041202
  Receipt Date: 20041202
  Transmission Date: 20050328
  Serious: Yes (Hospitalization)
  Sender: FDA-Public Use
  Company Number: None

PATIENT
  Age: 16 Year
  Sex: Male
  Weight: 60.4 kg

DRUGS (2)
  1. BLEOMYCIN [Suspect]
     Indication: HODGKIN'S DISEASE
     Dosage: 17.6 U IV
     Route: 042
     Dates: start: 20030904
  2. VINCRISTINE [Suspect]
     Indication: HODGKIN'S DISEASE
     Dosage: 2.5 MG
     Dates: start: 20030904

REACTIONS (2)
  - FEBRILE NEUTROPENIA [None]
  - MYOCLONUS [None]
